FAERS Safety Report 7927666-3 (Version None)
Quarter: 2011Q4

REPORT INFORMATION
  Report Type: 
  Country: None (occurrence: None)
  Receive Date: 20111118
  Receipt Date: 20111111
  Transmission Date: 20120403
  Serious: Yes (Hospitalization)
  Sender: FDA-Public Use
  Company Number: NL-MEDIMMUNE-MEDI-0013864

PATIENT
  Sex: Male
  Weight: 9.9 kg

DRUGS (6)
  1. SYNAGIS [Suspect]
     Indication: BRONCHOPULMONARY DYSPLASIA
     Dates: start: 20110912, end: 20111006
  2. BECLOMETHASONE DIPROPIONATE [Concomitant]
  3. MONTELUKAST SODIUM [Concomitant]
     Dates: end: 20110101
  4. ALBUTEROL SULFATE AUTOHALER [Concomitant]
     Dates: end: 20110101
  5. BACTRIM [Concomitant]
  6. SYNAGIS [Suspect]
     Dates: start: 20111103, end: 20111103

REACTIONS (2)
  - DYSPNOEA [None]
  - HOSPITALISATION [None]
